FAERS Safety Report 5252857-2 (Version None)
Quarter: 2007Q1

REPORT INFORMATION
  Report Type: 
  Country: None (occurrence: None)
  Receive Date: 20070301
  Receipt Date: 20070222
  Transmission Date: 20070707
  Serious: Yes (Hospitalization)
  Sender: FDA-Public Use
  Company Number: US-JNJFOC-20070205361

PATIENT
  Sex: Female

DRUGS (11)
  1. INFLIXIMAB [Suspect]
     Indication: RHEUMATOID ARTHRITIS
     Route: 042
  2. METHOTREXATE [Concomitant]
  3. CALCIUM [Concomitant]
  4. FOLIC ACID [Concomitant]
  5. GLUCOSAMINE [Concomitant]
  6. MULTI-VITAMIN [Concomitant]
  7. PLAQUENIL [Concomitant]
  8. POTASSIUM ACETATE [Concomitant]
  9. PREDNISONE [Concomitant]
  10. TYLENOL [Concomitant]
  11. VITAMIN E [Concomitant]

REACTIONS (1)
  - BREAST CANCER [None]
